FAERS Safety Report 8344848-X (Version None)
Quarter: 2012Q2

REPORT INFORMATION
  Report Type: 
  Country: None (occurrence: None)
  Receive Date: 20120508
  Receipt Date: 20120430
  Transmission Date: 20120825
  Serious: Yes (Death, Hospitalization)
  Sender: FDA-Public Use
  Company Number: US-GLAXOSMITHKLINE-A0975730A

PATIENT
  Sex: Male

DRUGS (1)
  1. EPIVIR-HBV [Suspect]
     Indication: HEPATIC ENCEPHALOPATHY
     Dosage: 150MG PER DAY
     Route: 048

REACTIONS (1)
  - CHRONIC HEPATIC FAILURE [None]
